FAERS Safety Report 5067622-9 (Version None)
Quarter: 2006Q3

REPORT INFORMATION
  Report Type: 
  Country: None (occurrence: None)
  Receive Date: 20060714
  Receipt Date: 20060105
  Transmission Date: 20061208
  Serious: Yes (Life-Threatening)
  Sender: FDA-Public Use
  Company Number: 1-13505637

PATIENT

DRUGS (1)
  1. BACTRIM [Suspect]
     Dosage: INTRAVENOUS DRIP
     Route: 041
     Dates: start: 20060101

REACTIONS (1)
  - HAEMOLYTIC ANAEMIA [None]
